FAERS Safety Report 20235240 (Version 1)
Quarter: 2021Q4

REPORT INFORMATION
  Report Type: Spontaneous
  Country: US (occurrence: US)
  Receive Date: 20211228
  Receipt Date: 20211228
  Transmission Date: 20220303
  Serious: Yes (Hospitalization)
  Sender: FDA-Public Use
  Company Number: US-ASTELLAS-2021US039344

PATIENT
  Age: 74 Year
  Sex: Male

DRUGS (1)
  1. PADCEV [Suspect]
     Active Substance: ENFORTUMAB VEDOTIN-EJFV
     Indication: Bladder transitional cell carcinoma
     Dosage: UNK UNK, CYCLIC
     Route: 065
     Dates: start: 20210902

REACTIONS (3)
  - Pneumonitis [Unknown]
  - Diarrhoea [Unknown]
  - Atelectasis [Unknown]

NARRATIVE: CASE EVENT DATE: 20211002
